FAERS Safety Report 23795094 (Version 2)
Quarter: 2024Q2

REPORT INFORMATION
  Report Type: Spontaneous
  Country: US (occurrence: US)
  Receive Date: 20240429
  Receipt Date: 20240608
  Transmission Date: 20240716
  Serious: No
  Sender: FDA-Public Use
  Company Number: US-SPECGX-T202301599

PATIENT
  Sex: Female

DRUGS (2)
  1. ACETAMINOPHEN\HYDROCODONE [Suspect]
     Active Substance: ACETAMINOPHEN\HYDROCODONE
     Indication: Back pain
     Dosage: 10/325 MG, FOUR TIMES A DAY
     Route: 065
     Dates: end: 202307
  2. METHADONE [Suspect]
     Active Substance: METHADONE HYDROCHLORIDE
     Indication: Product used for unknown indication
     Dosage: UNK
     Route: 065

REACTIONS (8)
  - Anger [Unknown]
  - Weight loss poor [Unknown]
  - Insomnia [Unknown]
  - Mood swings [Unknown]
  - Somnolence [Unknown]
  - Adverse event [Unknown]
  - Suspected product quality issue [Unknown]
  - Drug ineffective [Unknown]
